FAERS Safety Report 9243273 (Version 1)
Quarter: 2013Q2

REPORT INFORMATION
  Report Type: Spontaneous
  Country: GB (occurrence: GB)
  Receive Date: 20130419
  Receipt Date: 20130419
  Transmission Date: 20140414
  Serious: Yes (Disabling, Other)
  Sender: FDA-Public Use
  Company Number: GB-ABBOTT-13X-167-1074952-00

PATIENT
  Sex: Male

DRUGS (3)
  1. CLARITHROMYCIN [Suspect]
     Indication: ATYPICAL MYCOBACTERIAL LYMPHADENITIS
     Dosage: UNSURE OF DOSE/ROUTE
     Dates: start: 20130221, end: 20130307
  2. ETHAMBUTOL [Suspect]
     Indication: ATYPICAL MYCOBACTERIAL LYMPHADENITIS
     Dosage: UNSURE OF DOSE/ROUTE
     Dates: start: 20130221, end: 20130307
  3. RIFABUTIN [Interacting]
     Indication: ATYPICAL MYCOBACTERIAL LYMPHADENITIS
     Dosage: UNSURE OF DOSE/ROUTE
     Dates: start: 20130221, end: 20130307

REACTIONS (6)
  - Urinary incontinence [Unknown]
  - Dysphemia [Unknown]
  - Personality change [Unknown]
  - Repetitive speech [Unknown]
  - Enuresis [Unknown]
  - Drug interaction [Unknown]
